FAERS Safety Report 13629905 (Version 1)
Quarter: 2017Q2

REPORT INFORMATION
  Report Type: Spontaneous
  Country: US (occurrence: US)
  Receive Date: 20170531
  Receipt Date: 20170531
  Transmission Date: 20170830
  Serious: No
  Sender: FDA-Public Use
  Company Number: US-ASTELLAS-1256473

PATIENT
  Sex: Female

DRUGS (1)
  1. TARCEVA [Suspect]
     Active Substance: ERLOTINIB HYDROCHLORIDE
     Indication: LUNG NEOPLASM MALIGNANT
     Route: 065

REACTIONS (6)
  - Nasal congestion [Unknown]
  - Gait disturbance [Unknown]
  - Rhinorrhoea [Unknown]
  - Hypoacusis [Unknown]
  - Asthenopia [Unknown]
  - Bone pain [Unknown]
